FAERS Safety Report 25961645 (Version 1)
Quarter: 2025Q4

REPORT INFORMATION
  Report Type: Other
  Country: GB (occurrence: GB)
  Receive Date: 20251027
  Receipt Date: 20251027
  Transmission Date: 20260118
  Serious: Yes (Other)
  Sender: GLENMARK
  Company Number: None

PATIENT
  Age: 44 Year
  Sex: Female
  Weight: 174 kg

DRUGS (5)
  1. DAPAGLIFLOZIN [Suspect]
     Active Substance: DAPAGLIFLOZIN
     Indication: Diabetes mellitus
     Dosage: 10 MILLIGRAM, FIRST DOSE
     Route: 065
     Dates: start: 20251009
  2. DAPAGLIFLOZIN [Suspect]
     Active Substance: DAPAGLIFLOZIN
     Dosage: 10 MILLIGRAM, SECOND DOSE
     Route: 065
  3. DAPAGLIFLOZIN [Suspect]
     Active Substance: DAPAGLIFLOZIN
     Dosage: 10 MILLIGRAM, THIRD DOSE
     Route: 065
     Dates: end: 20251011
  4. DESOGESTREL [Concomitant]
     Active Substance: DESOGESTREL
     Indication: Contraception
     Dosage: UNK
     Route: 065
  5. METFORMIN [Concomitant]
     Active Substance: METFORMIN HYDROCHLORIDE
     Indication: Diabetes mellitus
     Dosage: UNK
     Route: 065
     Dates: start: 20250808

REACTIONS (5)
  - Throat tightness [Recovered/Resolved]
  - Tongue disorder [Recovered/Resolved]
  - Pruritus [Recovering/Resolving]
  - Rash [Not Recovered/Not Resolved]
  - Swollen tongue [Unknown]

NARRATIVE: CASE EVENT DATE: 20251010
